FAERS Safety Report 16938640 (Version 3)
Quarter: 2019Q4

REPORT INFORMATION
  Report Type: Spontaneous
  Country: ME (occurrence: ME)
  Receive Date: 20191019
  Receipt Date: 20191214
  Transmission Date: 20200122
  Serious: Yes (Other)
  Sender: FDA-Public Use
  Company Number: NVSC2019ME002843

PATIENT
  Age: 32 Year
  Sex: Male
  Weight: 134 kg

DRUGS (5)
  1. METFORMINE [Suspect]
     Active Substance: METFORMIN HYDROCHLORIDE
     Indication: PRODUCT USED FOR UNKNOWN INDICATION
     Dosage: 2 G
     Route: 065
     Dates: start: 201705
  2. SITAGLIPTIN [Suspect]
     Active Substance: SITAGLIPTIN
     Indication: PRODUCT USED FOR UNKNOWN INDICATION
     Dosage: 100 MG
     Route: 065
     Dates: start: 201705
  3. PASIREOTIDE. [Suspect]
     Active Substance: PASIREOTIDE
     Indication: PITUITARY-DEPENDENT CUSHING^S SYNDROME
     Dosage: 0.6 MG/ML, BID
     Route: 065
     Dates: start: 201702
  4. PASIREOTIDE. [Suspect]
     Active Substance: PASIREOTIDE
     Dosage: 0.9 MG/ML, BID
     Route: 065
     Dates: start: 201707
  5. PASIREOTIDE. [Suspect]
     Active Substance: PASIREOTIDE
     Dosage: 0.6 MG/ML, BID
     Route: 065
     Dates: start: 201907

REACTIONS (12)
  - High density lipoprotein decreased [Unknown]
  - Cortisol decreased [Unknown]
  - Blood testosterone decreased [Not Recovered/Not Resolved]
  - Pituitary tumour benign [Unknown]
  - Cholelithiasis [Unknown]
  - Blood gonadotrophin decreased [Recovered/Resolved]
  - Bone density decreased [Unknown]
  - Dyslipidaemia [Recovered/Resolved]
  - Erectile dysfunction [Not Recovered/Not Resolved]
  - Sex hormone binding globulin decreased [Unknown]
  - Glucose tolerance impaired [Recovered/Resolved]
  - Hyperglycaemia [Unknown]

NARRATIVE: CASE EVENT DATE: 201705
